FAERS Safety Report 10777200 (Version 3)
Quarter: 2017Q2

REPORT INFORMATION
  Report Type: Spontaneous
  Country: US (occurrence: US)
  Receive Date: 20150209
  Receipt Date: 20170414
  Transmission Date: 20170829
  Serious: Yes (Hospitalization)
  Sender: FDA-Public Use
  Company Number: US-SA-2015SA013899

PATIENT
  Age: 43 Year
  Sex: Female

DRUGS (2)
  1. AUBAGIO [Suspect]
     Active Substance: TERIFLUNOMIDE
     Dosage: STRENGTH: 7 MG
     Route: 065
  2. AUBAGIO [Suspect]
     Active Substance: TERIFLUNOMIDE
     Dosage: STRENMGTH: 14 MG
     Route: 065
     Dates: start: 201512, end: 201612

REACTIONS (2)
  - Perivascular dermatitis [Recovering/Resolving]
  - Acute hepatic failure [Unknown]

NARRATIVE: CASE EVENT DATE: 201605
